FAERS Safety Report 24363184 (Version 1)
Quarter: 2024Q3

REPORT INFORMATION
  Report Type: Spontaneous
  Country: JP (occurrence: JP)
  Receive Date: 20240925
  Receipt Date: 20240925
  Transmission Date: 20241016
  Serious: Yes (Other)
  Sender: ELI LILLY AND CO
  Company Number: JP-ELI_LILLY_AND_COMPANY-JP202409011480

PATIENT
  Age: 72 Year
  Sex: Male
  Weight: 51 kg

DRUGS (2)
  1. CYRAMZA [Suspect]
     Active Substance: RAMUCIRUMAB
     Indication: Metastatic gastric cancer
     Dosage: UNK, EVERY TWO WEEKS
     Route: 041
     Dates: start: 202008, end: 202102
  2. IRINOTECAN [Concomitant]
     Active Substance: IRINOTECAN
     Indication: Metastatic gastric cancer
     Dosage: UNK
     Dates: start: 202103, end: 202106

REACTIONS (3)
  - Tumour haemorrhage [Unknown]
  - Decreased appetite [Unknown]
  - Diarrhoea [Unknown]

NARRATIVE: CASE EVENT DATE: 20210201
